FAERS Safety Report 11151396 (Version 1)
Quarter: 2015Q2

REPORT INFORMATION
  Report Type: Report from Study
  Country: FR (occurrence: FR)
  Receive Date: 20150601
  Receipt Date: 20150601
  Transmission Date: 20150821
  Serious: Yes (Other)
  Sender: FDA-Public Use
  Company Number: FR-BIOGENIDEC-2015BI073519

PATIENT
  Age: 17 Year
  Sex: Female

DRUGS (1)
  1. TYSABRI [Suspect]
     Active Substance: NATALIZUMAB
     Indication: PRODUCT USED FOR UNKNOWN INDICATION
     Route: 042

REACTIONS (7)
  - Pyrexia [Unknown]
  - Infection [Unknown]
  - Drug administered to patient of inappropriate age [Unknown]
  - Arthralgia [Unknown]
  - Asthenia [Unknown]
  - Leukocytosis [Unknown]
  - Headache [Unknown]

NARRATIVE: CASE EVENT DATE: 20090325
